FAERS Safety Report 10356988 (Version 1)
Quarter: 2014Q3

REPORT INFORMATION
  Report Type: Spontaneous
  Country: FR (occurrence: FR)
  Receive Date: 20140801
  Receipt Date: 20140801
  Transmission Date: 20150326
  Serious: Yes (Hospitalization)
  Sender: FDA-Public Use
  Company Number: FR-SHIRE-FR201404327

PATIENT
  Age: 77 Year
  Sex: Male

DRUGS (3)
  1. XAGRID [Suspect]
     Active Substance: ANAGRELIDE HYDROCHLORIDE
     Indication: PRODUCT USED FOR UNKNOWN INDICATION
     Dosage: UNK, UNKNOWN
     Route: 048
     Dates: start: 201310, end: 20131221
  2. TRIATEC                            /00116401/ [Suspect]
     Active Substance: HYDROCHLOROTHIAZIDE
     Indication: PRODUCT USED FOR UNKNOWN INDICATION
     Dosage: UNK, UNKNOWN
     Route: 048
     Dates: end: 20140107
  3. LASILIX                            /00032601/ [Suspect]
     Active Substance: FUROSEMIDE
     Indication: PRODUCT USED FOR UNKNOWN INDICATION
     Dosage: UNK, UNKNOWN
     Route: 048
     Dates: start: 20131018, end: 20131221

REACTIONS (6)
  - Renal failure [Unknown]
  - Drug reaction with eosinophilia and systemic symptoms [Unknown]
  - Dermatosis [Recovering/Resolving]
  - Rash [Recovering/Resolving]
  - Pyrexia [Unknown]
  - Eosinophilia [Recovered/Resolved]

NARRATIVE: CASE EVENT DATE: 201311
